FAERS Safety Report 10101437 (Version 4)
Quarter: 2014Q3

REPORT INFORMATION
  Report Type: Report from Study
  Country: US (occurrence: US)
  Receive Date: 20140424
  Receipt Date: 20140707
  Transmission Date: 20150326
  Serious: Yes (Hospitalization)
  Sender: FDA-Public Use
  Company Number: US-ROCHE-1384527

PATIENT
  Age: 45 Year
  Sex: Male
  Weight: 92 kg

DRUGS (12)
  1. PAXIL [Concomitant]
     Active Substance: PAROXETINE HYDROCHLORIDE
     Indication: DEPRESSION
     Route: 048
     Dates: start: 1997
  2. ABT-450 [Suspect]
     Active Substance: VERUPREVIR
     Indication: CHRONIC HEPATITIS C
     Dosage: 78/50/12.5 MG
     Route: 048
     Dates: start: 20140222, end: 20140314
  3. ABT-333 (HCV POLYMERASE INHIBITOR) [Suspect]
     Active Substance: DASABUVIR
     Indication: CHRONIC HEPATITIS C
     Route: 048
     Dates: start: 20140222, end: 20140314
  4. ABT-333 (HCV POLYMERASE INHIBITOR) [Suspect]
     Active Substance: DASABUVIR
     Route: 048
     Dates: start: 20140319, end: 20140404
  5. GABAPENTIN. [Concomitant]
     Active Substance: GABAPENTIN
     Indication: MOOD SWINGS
     Route: 048
     Dates: start: 1997
  6. RIBAVIRIN. [Suspect]
     Active Substance: RIBAVIRIN
     Dosage: 1200 MG DIVIDED TWICE DAILY
     Route: 048
     Dates: start: 20140319, end: 20140404
  7. SEROQUEL [Concomitant]
     Active Substance: QUETIAPINE FUMARATE
     Indication: BIPOLAR DISORDER
     Route: 048
     Dates: start: 1997
  8. RIBAVIRIN. [Suspect]
     Active Substance: RIBAVIRIN
     Indication: CHRONIC HEPATITIS C
     Dosage: 1200 MG DIVIDED TWICE DAILY
     Route: 048
     Dates: start: 20140222, end: 20140314
  9. ASPIRIN. [Concomitant]
     Active Substance: ASPIRIN
     Indication: MUSCULOSKELETAL PAIN
     Route: 048
     Dates: start: 20140223
  10. ABT-450 [Suspect]
     Active Substance: VERUPREVIR
     Dosage: 78/50/12.5 MG
     Route: 048
     Dates: start: 20140319, end: 20140404
  11. ABT-530 [Suspect]
     Active Substance: INVESTIGATIONAL PRODUCT
     Indication: CHRONIC HEPATITIS C
     Route: 048
     Dates: start: 20140219, end: 20140221
  12. RISPERDAL [Concomitant]
     Active Substance: RISPERIDONE
     Indication: BIPOLAR DISORDER
     Route: 048
     Dates: start: 1997

REACTIONS (1)
  - Mania [Recovered/Resolved]

NARRATIVE: CASE EVENT DATE: 20140315
